FAERS Safety Report 25689345 (Version 2)
Quarter: 2025Q3

REPORT INFORMATION
  Report Type: Report from Study
  Country: CA (occurrence: CA)
  Receive Date: 20250818
  Receipt Date: 20250825
  Transmission Date: 20251020
  Serious: Yes (Hospitalization)
  Sender: TAKEDA
  Company Number: CA-TAKEDA-2025TUS072077

PATIENT
  Sex: Male

DRUGS (1)
  1. FRUQUINTINIB [Suspect]
     Active Substance: FRUQUINTINIB
     Indication: Colorectal cancer metastatic

REACTIONS (1)
  - Liver function test increased [Unknown]
